FAERS Safety Report 8958912 (Version 1)
Quarter: 2012Q4

REPORT INFORMATION
  Report Type: 
  Country: ES (occurrence: ES)
  Receive Date: 20121212
  Receipt Date: 20121212
  Transmission Date: 20130627
  Serious: Yes (Death, Other)
  Sender: FDA-Public Use
  Company Number: ES-ROCHE-1161521

PATIENT
  Age: 33 Year
  Sex: Male

DRUGS (7)
  1. GANCICLOVIR [Suspect]
     Indication: PRODUCT USED FOR UNKNOWN INDICATION
     Route: 065
  2. MYCOPHENOLATE MOFETIL [Suspect]
     Indication: PRODUCT USED FOR UNKNOWN INDICATION
     Route: 050
  3. CYTARABINE [Concomitant]
  4. GLIVEC [Concomitant]
  5. FOSCAVIR [Concomitant]
  6. IGG [Concomitant]
  7. CORTICOSTEROID (UNK INGREDIENTS) [Concomitant]

REACTIONS (10)
  - Cytomegalovirus infection [Fatal]
  - Convulsion [Unknown]
  - Depressed level of consciousness [Unknown]
  - Rectal haemorrhage [Unknown]
  - Cerebral haemorrhage [Unknown]
  - Encephalitis cytomegalovirus [Unknown]
  - Thrombotic microangiopathy [Unknown]
  - Upper gastrointestinal haemorrhage [Unknown]
  - Gastrointestinal ulcer [Unknown]
  - Graft versus host disease [Unknown]
